FAERS Safety Report 13560066 (Version 1)
Quarter: 2017Q2

REPORT INFORMATION
  Report Type: Spontaneous
  Country: US (occurrence: US)
  Receive Date: 20170518
  Receipt Date: 20170518
  Transmission Date: 20170830
  Serious: Yes (Other)
  Sender: FDA-Public Use
  Company Number: US-PFIZER INC-2017212878

PATIENT
  Sex: Female

DRUGS (1)
  1. XELJANZ XR [Suspect]
     Active Substance: TOFACITINIB CITRATE
     Dosage: 11 MG, UNK

REACTIONS (14)
  - Blood pressure increased [Unknown]
  - Trigger finger [Unknown]
  - Synovitis [Unknown]
  - Pneumonia [Unknown]
  - Joint crepitation [Unknown]
  - Asthma [Unknown]
  - Fatigue [Unknown]
  - Arthralgia [Unknown]
  - Chills [Unknown]
  - Musculoskeletal pain [Unknown]
  - Musculoskeletal stiffness [Unknown]
  - Dry mouth [Unknown]
  - Musculoskeletal discomfort [Unknown]
  - Peripheral swelling [Unknown]
